FAERS Safety Report 11300249 (Version 1)
Quarter: 2015Q3

REPORT INFORMATION
  Report Type: Spontaneous
  Country: US (occurrence: US)
  Receive Date: 20150722
  Receipt Date: 20150722
  Transmission Date: 20151125
  Serious: No
  Sender: FDA-Public Use
  Company Number: US-ELI_LILLY_AND_COMPANY-US201308006239

PATIENT
  Sex: Male

DRUGS (1)
  1. EFFIENT [Suspect]
     Active Substance: PRASUGREL HYDROCHLORIDE
     Indication: STENT PLACEMENT
     Dosage: UNK
     Dates: end: 20130814

REACTIONS (3)
  - Erectile dysfunction [Not Recovered/Not Resolved]
  - Haemorrhage [Recovered/Resolved]
  - Headache [Not Recovered/Not Resolved]
